FAERS Safety Report 7954015-7 (Version None)
Quarter: 2011Q4

REPORT INFORMATION
  Report Type: 
  Country: None (occurrence: None)
  Receive Date: 20111129
  Receipt Date: 20111117
  Transmission Date: 20120403
  Serious: No
  Sender: FDA-Public Use
  Company Number: 2011SP003919

PATIENT

DRUGS (1)
  1. LATUDA [Suspect]
     Dosage: ;ORAL
     Route: 048
     Dates: start: 20110101, end: 20110101

REACTIONS (2)
  - RASH [None]
  - EYELID OEDEMA [None]
